FAERS Safety Report 10501052 (Version 1)
Quarter: 2014Q4

REPORT INFORMATION
  Report Type: Spontaneous
  Country: US (occurrence: None)
  Receive Date: 20141003
  Receipt Date: 20141003
  Transmission Date: 20150528
  Serious: No
  Sender: FDA-Public Use
  Company Number: None

PATIENT
  Age: 33 Year
  Sex: Female
  Weight: 68.04 kg

DRUGS (1)
  1. MIRVASO [Suspect]
     Active Substance: BRIMONIDINE TARTRATE
     Indication: ERYTHEMA
     Dosage: 1 APPLICATION ?ONCE DAILY?APPLIED TO A SURFACE USUALLY THE SKIN
     Route: 061
     Dates: start: 20140913, end: 20140922

REACTIONS (5)
  - Erythema [None]
  - Condition aggravated [None]
  - Flushing [None]
  - Rash macular [None]
  - Rosacea [None]

NARRATIVE: CASE EVENT DATE: 20140920
